FAERS Safety Report 9016111 (Version 1)
Quarter: 2013Q1

REPORT INFORMATION
  Report Type: Spontaneous
  Country: US (occurrence: US)
  Receive Date: 20130116
  Receipt Date: 20130116
  Transmission Date: 20140127
  Serious: Yes (Other)
  Sender: FDA-Public Use
  Company Number: US-PFIZER INC-2013015036

PATIENT
  Sex: Female

DRUGS (2)
  1. LYRICA [Suspect]
     Indication: NEURALGIA
     Dosage: UNK
     Dates: end: 2005
  2. TYLENOL [Concomitant]
     Indication: PAIN IN EXTREMITY
     Dosage: UNK

REACTIONS (7)
  - Intervertebral disc protrusion [Unknown]
  - Spinal osteoarthritis [Unknown]
  - Spinal column stenosis [Unknown]
  - Intervertebral disc disorder [Unknown]
  - Back pain [Unknown]
  - Paraesthesia [Unknown]
  - Pain in extremity [Unknown]
